FAERS Safety Report 9541021 (Version 1)
Quarter: 2013Q3

REPORT INFORMATION
  Report Type: Spontaneous
  Country: CM (occurrence: CM)
  Receive Date: 20130922
  Receipt Date: 20130922
  Transmission Date: 20140515
  Serious: Yes (Hospitalization, Other)
  Sender: FDA-Public Use
  Company Number: CM-009507513-1309CMR007020

PATIENT
  Age: 33 Year
  Sex: Male
  Weight: 164 kg

DRUGS (2)
  1. MECTIZAN [Suspect]
     Indication: FILARIASIS LYMPHATIC
     Dosage: 4 DF, UNK
     Route: 048
     Dates: start: 20130728
  2. ALBENDAZOLE [Suspect]
     Indication: FILARIASIS LYMPHATIC
     Dosage: 1 DF, UNK
     Dates: start: 20130728

REACTIONS (5)
  - Loss of consciousness [Recovered/Resolved]
  - Pyrexia [Recovered/Resolved]
  - Headache [Recovered/Resolved]
  - Asthenia [Recovered/Resolved]
  - Dyspnoea [Recovered/Resolved]
